FAERS Safety Report 14239620 (Version 1)
Quarter: 2017Q4

REPORT INFORMATION
  Report Type: Spontaneous
  Country: US (occurrence: None)
  Receive Date: 20171130
  Receipt Date: 20171130
  Transmission Date: 20180321
  Serious: Yes (Hospitalization)
  Sender: FDA-Public Use
  Company Number: None

PATIENT
  Age: 9 Year
  Sex: Female
  Weight: 30.6 kg

DRUGS (5)
  1. VINCRISTINE SULFATE. [Suspect]
     Active Substance: VINCRISTINE SULFATE
     Dates: end: 20171120
  2. CYTARABINE. [Suspect]
     Active Substance: CYTARABINE
     Dates: end: 20171113
  3. DEXAMETHASONE. [Suspect]
     Active Substance: DEXAMETHASONE
     Dates: end: 20171125
  4. ONCASPAR [Suspect]
     Active Substance: PEGASPARGASE
     Dates: end: 20171116
  5. METHOTREXATE. [Suspect]
     Active Substance: METHOTREXATE
     Dates: end: 20171120

REACTIONS (16)
  - Discoloured vomit [None]
  - Listless [None]
  - Shock [None]
  - Body temperature increased [None]
  - Abdominal pain upper [None]
  - Sinus arrhythmia [None]
  - Bacterial infection [None]
  - Pain [None]
  - Crying [None]
  - Hyperdynamic left ventricle [None]
  - Emotional distress [None]
  - Malaise [None]
  - Hypotension [None]
  - Poor venous access [None]
  - Oxygen saturation decreased [None]
  - Blood culture positive [None]

NARRATIVE: CASE EVENT DATE: 20171126
